FAERS Safety Report 9697450 (Version 1)
Quarter: 2013Q4

REPORT INFORMATION
  Report Type: Spontaneous
  Country: US (occurrence: None)
  Receive Date: 20131119
  Receipt Date: 20131119
  Transmission Date: 20140711
  Serious: Yes (Other)
  Sender: FDA-Public Use
  Company Number: None

PATIENT
  Age: 64 Year
  Sex: Female
  Weight: 68.04 kg

DRUGS (1)
  1. BUPROPION ER [Suspect]
     Indication: DEPRESSION
     Route: 048
     Dates: start: 20131001, end: 20131031

REACTIONS (3)
  - Dizziness [None]
  - Headache [None]
  - Palpitations [None]
